FAERS Safety Report 7959621-1 (Version None)
Quarter: 2011Q4

REPORT INFORMATION
  Report Type: 
  Country: None (occurrence: None)
  Receive Date: 20111201
  Receipt Date: 20111122
  Transmission Date: 20120403
  Serious: Yes (Hospitalization)
  Sender: FDA-Public Use
  Company Number: 1000023978

PATIENT
  Age: 74 Year
  Sex: Male

DRUGS (10)
  1. ADVAIR HFA [Concomitant]
  2. LASIX [Concomitant]
  3. POTASSIUM ACETATE [Concomitant]
  4. CALCIUM [Concomitant]
  5. PREDNISONE TAB [Concomitant]
  6. MUCINEX [Concomitant]
  7. DALIRESP [Suspect]
     Indication: CHRONIC OBSTRUCTIVE PULMONARY DISEASE
     Dosage: 500 MCG (500 MCG, 1 IN 1 D), ORAL
     Route: 048
     Dates: start: 20110829, end: 20110912
  8. FLOVENT [Concomitant]
  9. DUCONEB (COMBIVENT) [Concomitant]
  10. ASPIRIN [Concomitant]

REACTIONS (8)
  - FACIAL BONES FRACTURE [None]
  - ATRIAL FIBRILLATION [None]
  - SINUS TACHYCARDIA [None]
  - FALL [None]
  - ELECTROCARDIOGRAM ST-T SEGMENT ABNORMAL [None]
  - BUNDLE BRANCH BLOCK RIGHT [None]
  - HAEMOGLOBIN DECREASED [None]
  - HAEMATOCRIT DECREASED [None]
